FAERS Safety Report 6910427-1 (Version None)
Quarter: 2010Q3

REPORT INFORMATION
  Report Type: 
  Country: None (occurrence: None)
  Receive Date: 20100806
  Receipt Date: 20100726
  Transmission Date: 20110219
  Serious: Yes (Hospitalization)
  Sender: FDA-Public Use
  Company Number: US-PFIZER INC-2010093626

PATIENT
  Sex: Male
  Weight: 77.098 kg

DRUGS (2)
  1. NEURONTIN [Suspect]
     Indication: PAIN
     Dosage: UNK
     Route: 048
     Dates: end: 20100719
  2. DILANTIN-125 [Suspect]
     Indication: CONVULSION
     Dosage: UNK
     Route: 048

REACTIONS (6)
  - EATING DISORDER [None]
  - EYE ROLLING [None]
  - HYPERSOMNIA [None]
  - SPEECH DISORDER [None]
  - TREMOR [None]
  - WITHDRAWAL SYNDROME [None]
